FAERS Safety Report 4280534-3 (Version None)
Quarter: 2004Q1

REPORT INFORMATION
  Report Type: 
  Country: None (occurrence: None)
  Receive Date: 20040127
  Receipt Date: 20040112
  Transmission Date: 20041129
  Serious: Yes (Hospitalization)
  Sender: FDA-Public Use
  Company Number: 2004193871GB

PATIENT
  Sex: Female

DRUGS (3)
  1. NICORETTE [Suspect]
     Indication: DRUG DEPENDENCE
     Dosage: 4 MG, QD, BUCCAL
     Route: 002
     Dates: start: 20040110
  2. NICOTINE [Suspect]
     Dosage: 14 MG, QD
     Dates: start: 20040101, end: 20040110
  3. VALIUM [Concomitant]

REACTIONS (4)
  - ANXIETY [None]
  - CIRCULATORY COLLAPSE [None]
  - DEPRESSION [None]
  - FEELING ABNORMAL [None]
